FAERS Safety Report 4867382-8 (Version None)
Quarter: 2005Q4

REPORT INFORMATION
  Report Type: 
  Country: None (occurrence: None)
  Receive Date: 20051228
  Receipt Date: 20051220
  Transmission Date: 20060501
  Serious: Yes (Death)
  Sender: FDA-Public Use
  Company Number: US-AVENTIS-200521190GDDC

PATIENT
  Age: 37 Year
  Sex: Female
  Weight: 101 kg

DRUGS (1)
  1. DOCETAXEL [Suspect]
     Indication: BREAST CANCER
     Route: 042
     Dates: start: 20051212, end: 20051212

REACTIONS (3)
  - GASTROINTESTINAL NECROSIS [None]
  - INTESTINAL ISCHAEMIA [None]
  - KETOACIDOSIS [None]
